FAERS Safety Report 16359292 (Version 2)
Quarter: 2020Q2

REPORT INFORMATION
  Report Type: Spontaneous
  Country: IT (occurrence: IT)
  Receive Date: 20190528
  Receipt Date: 20200515
  Transmission Date: 20200713
  Serious: Yes (Hospitalization, Other)
  Sender: FDA-Public Use
  Company Number: IT-SUN PHARMACEUTICAL INDUSTRIES LTD-2019R1-208795

PATIENT
  Age: 22 Year
  Sex: Female
  Weight: 91 kg

DRUGS (1)
  1. CLOZAPINE. [Suspect]
     Active Substance: CLOZAPINE
     Indication: SCHIZOPHRENIA
     Dosage: 200 MILLIGRAM, DAILY
     Route: 065

REACTIONS (2)
  - Pericarditis [Recovered/Resolved]
  - Pericardial effusion [Recovered/Resolved]
